FAERS Safety Report 25621943 (Version 2)
Quarter: 2025Q3

REPORT INFORMATION
  Report Type: Spontaneous
  Country: US (occurrence: US)
  Receive Date: 20250730
  Receipt Date: 20250819
  Transmission Date: 20251021
  Serious: Yes (Hospitalization, Other)
  Sender: CHEPLAPHARM
  Company Number: US-CHEPLA-2025009087

PATIENT
  Age: 41 Year
  Sex: Male
  Weight: 84 kg

DRUGS (74)
  1. OLANZAPINE PAMOATE [Suspect]
     Active Substance: OLANZAPINE PAMOATE
     Indication: Schizoaffective disorder bipolar type
     Route: 042
     Dates: start: 20200131
  2. OLANZAPINE PAMOATE [Suspect]
     Active Substance: OLANZAPINE PAMOATE
     Indication: Schizoaffective disorder bipolar type
     Route: 042
     Dates: start: 20200214
  3. OLANZAPINE PAMOATE [Suspect]
     Active Substance: OLANZAPINE PAMOATE
     Indication: Schizoaffective disorder bipolar type
     Route: 042
     Dates: start: 20200228
  4. OLANZAPINE PAMOATE [Suspect]
     Active Substance: OLANZAPINE PAMOATE
     Indication: Schizoaffective disorder bipolar type
     Route: 042
     Dates: start: 20200313
  5. OLANZAPINE PAMOATE [Suspect]
     Active Substance: OLANZAPINE PAMOATE
     Indication: Schizoaffective disorder bipolar type
     Route: 042
     Dates: start: 20200609
  6. OLANZAPINE PAMOATE [Suspect]
     Active Substance: OLANZAPINE PAMOATE
     Indication: Schizoaffective disorder bipolar type
     Route: 042
     Dates: start: 20200623
  7. OLANZAPINE PAMOATE [Suspect]
     Active Substance: OLANZAPINE PAMOATE
     Indication: Schizoaffective disorder bipolar type
     Route: 042
     Dates: start: 20200707
  8. OLANZAPINE PAMOATE [Suspect]
     Active Substance: OLANZAPINE PAMOATE
     Indication: Schizoaffective disorder bipolar type
     Route: 042
     Dates: start: 20200721
  9. OLANZAPINE PAMOATE [Suspect]
     Active Substance: OLANZAPINE PAMOATE
     Indication: Schizoaffective disorder bipolar type
     Route: 042
     Dates: start: 20200804
  10. OLANZAPINE PAMOATE [Suspect]
     Active Substance: OLANZAPINE PAMOATE
     Indication: Schizoaffective disorder bipolar type
     Route: 042
     Dates: start: 20200818
  11. OLANZAPINE PAMOATE [Suspect]
     Active Substance: OLANZAPINE PAMOATE
     Indication: Schizoaffective disorder bipolar type
     Route: 042
     Dates: start: 20200901
  12. OLANZAPINE PAMOATE [Suspect]
     Active Substance: OLANZAPINE PAMOATE
     Indication: Schizoaffective disorder bipolar type
     Route: 042
     Dates: start: 20200915
  13. OLANZAPINE PAMOATE [Suspect]
     Active Substance: OLANZAPINE PAMOATE
     Indication: Schizoaffective disorder bipolar type
     Route: 042
     Dates: start: 20201013
  14. OLANZAPINE PAMOATE [Suspect]
     Active Substance: OLANZAPINE PAMOATE
     Indication: Schizoaffective disorder bipolar type
     Route: 042
     Dates: start: 20201110
  15. OLANZAPINE PAMOATE [Suspect]
     Active Substance: OLANZAPINE PAMOATE
     Indication: Schizoaffective disorder bipolar type
     Route: 042
     Dates: start: 20201208
  16. OLANZAPINE PAMOATE [Suspect]
     Active Substance: OLANZAPINE PAMOATE
     Indication: Schizoaffective disorder bipolar type
     Route: 042
     Dates: start: 20210105
  17. OLANZAPINE PAMOATE [Suspect]
     Active Substance: OLANZAPINE PAMOATE
     Indication: Schizoaffective disorder bipolar type
     Route: 042
     Dates: start: 20210202
  18. OLANZAPINE PAMOATE [Suspect]
     Active Substance: OLANZAPINE PAMOATE
     Indication: Schizoaffective disorder bipolar type
     Route: 042
     Dates: start: 20210304
  19. OLANZAPINE PAMOATE [Suspect]
     Active Substance: OLANZAPINE PAMOATE
     Indication: Schizoaffective disorder bipolar type
     Route: 042
     Dates: start: 20210406
  20. OLANZAPINE PAMOATE [Suspect]
     Active Substance: OLANZAPINE PAMOATE
     Indication: Schizoaffective disorder bipolar type
     Route: 042
     Dates: start: 20210504
  21. OLANZAPINE PAMOATE [Suspect]
     Active Substance: OLANZAPINE PAMOATE
     Indication: Schizoaffective disorder bipolar type
     Route: 042
     Dates: start: 20210601
  22. OLANZAPINE PAMOATE [Suspect]
     Active Substance: OLANZAPINE PAMOATE
     Indication: Schizoaffective disorder bipolar type
     Route: 042
     Dates: start: 20210622
  23. OLANZAPINE PAMOATE [Suspect]
     Active Substance: OLANZAPINE PAMOATE
     Indication: Schizoaffective disorder bipolar type
     Route: 042
     Dates: start: 20210722
  24. OLANZAPINE PAMOATE [Suspect]
     Active Substance: OLANZAPINE PAMOATE
     Indication: Schizoaffective disorder bipolar type
     Route: 042
     Dates: start: 20210823
  25. OLANZAPINE PAMOATE [Suspect]
     Active Substance: OLANZAPINE PAMOATE
     Indication: Schizoaffective disorder bipolar type
     Route: 042
     Dates: start: 20210916
  26. OLANZAPINE PAMOATE [Suspect]
     Active Substance: OLANZAPINE PAMOATE
     Indication: Schizoaffective disorder bipolar type
     Route: 042
     Dates: start: 20211014
  27. OLANZAPINE PAMOATE [Suspect]
     Active Substance: OLANZAPINE PAMOATE
     Indication: Schizoaffective disorder bipolar type
     Route: 042
     Dates: start: 20211111
  28. OLANZAPINE PAMOATE [Suspect]
     Active Substance: OLANZAPINE PAMOATE
     Indication: Schizoaffective disorder bipolar type
     Route: 042
     Dates: start: 20211209
  29. OLANZAPINE PAMOATE [Suspect]
     Active Substance: OLANZAPINE PAMOATE
     Indication: Schizoaffective disorder bipolar type
     Route: 042
     Dates: start: 20220107
  30. OLANZAPINE PAMOATE [Suspect]
     Active Substance: OLANZAPINE PAMOATE
     Indication: Schizoaffective disorder bipolar type
     Route: 042
     Dates: start: 20220203
  31. OLANZAPINE PAMOATE [Suspect]
     Active Substance: OLANZAPINE PAMOATE
     Indication: Schizoaffective disorder bipolar type
     Route: 042
     Dates: start: 20220303
  32. OLANZAPINE PAMOATE [Suspect]
     Active Substance: OLANZAPINE PAMOATE
     Indication: Schizoaffective disorder bipolar type
     Route: 042
     Dates: start: 20220331
  33. OLANZAPINE PAMOATE [Suspect]
     Active Substance: OLANZAPINE PAMOATE
     Indication: Schizoaffective disorder bipolar type
     Route: 042
     Dates: start: 20220428
  34. OLANZAPINE PAMOATE [Suspect]
     Active Substance: OLANZAPINE PAMOATE
     Indication: Schizoaffective disorder bipolar type
     Route: 042
     Dates: start: 20220526
  35. OLANZAPINE PAMOATE [Suspect]
     Active Substance: OLANZAPINE PAMOATE
     Indication: Schizoaffective disorder bipolar type
     Route: 042
     Dates: start: 20220623
  36. OLANZAPINE PAMOATE [Suspect]
     Active Substance: OLANZAPINE PAMOATE
     Indication: Schizoaffective disorder bipolar type
     Route: 042
     Dates: start: 20220721
  37. OLANZAPINE PAMOATE [Suspect]
     Active Substance: OLANZAPINE PAMOATE
     Indication: Schizoaffective disorder bipolar type
     Route: 042
     Dates: start: 20220818
  38. OLANZAPINE PAMOATE [Suspect]
     Active Substance: OLANZAPINE PAMOATE
     Indication: Schizoaffective disorder bipolar type
     Route: 042
     Dates: start: 20220916
  39. OLANZAPINE PAMOATE [Suspect]
     Active Substance: OLANZAPINE PAMOATE
     Indication: Schizoaffective disorder bipolar type
     Route: 042
     Dates: start: 20221014
  40. OLANZAPINE PAMOATE [Suspect]
     Active Substance: OLANZAPINE PAMOATE
     Indication: Schizoaffective disorder bipolar type
     Route: 042
     Dates: start: 20221111
  41. OLANZAPINE PAMOATE [Suspect]
     Active Substance: OLANZAPINE PAMOATE
     Indication: Schizoaffective disorder bipolar type
     Route: 042
     Dates: start: 20221209
  42. OLANZAPINE PAMOATE [Suspect]
     Active Substance: OLANZAPINE PAMOATE
     Indication: Schizoaffective disorder bipolar type
     Route: 042
     Dates: start: 20230109
  43. OLANZAPINE PAMOATE [Suspect]
     Active Substance: OLANZAPINE PAMOATE
     Indication: Schizoaffective disorder bipolar type
     Route: 042
     Dates: start: 20230206
  44. OLANZAPINE PAMOATE [Suspect]
     Active Substance: OLANZAPINE PAMOATE
     Indication: Schizoaffective disorder bipolar type
     Route: 042
     Dates: start: 20230310
  45. OLANZAPINE PAMOATE [Suspect]
     Active Substance: OLANZAPINE PAMOATE
     Indication: Schizoaffective disorder bipolar type
     Route: 042
     Dates: start: 20230411
  46. OLANZAPINE PAMOATE [Suspect]
     Active Substance: OLANZAPINE PAMOATE
     Indication: Schizoaffective disorder bipolar type
     Route: 042
     Dates: start: 20230512
  47. OLANZAPINE PAMOATE [Suspect]
     Active Substance: OLANZAPINE PAMOATE
     Indication: Schizoaffective disorder bipolar type
     Route: 042
     Dates: start: 20230612
  48. OLANZAPINE PAMOATE [Suspect]
     Active Substance: OLANZAPINE PAMOATE
     Indication: Schizoaffective disorder bipolar type
     Route: 042
     Dates: start: 20230710
  49. OLANZAPINE PAMOATE [Suspect]
     Active Substance: OLANZAPINE PAMOATE
     Indication: Schizoaffective disorder bipolar type
     Route: 042
     Dates: start: 20230807
  50. OLANZAPINE PAMOATE [Suspect]
     Active Substance: OLANZAPINE PAMOATE
     Indication: Schizoaffective disorder bipolar type
     Route: 042
     Dates: start: 20230905
  51. OLANZAPINE PAMOATE [Suspect]
     Active Substance: OLANZAPINE PAMOATE
     Indication: Schizoaffective disorder bipolar type
     Route: 042
     Dates: start: 20231004
  52. OLANZAPINE PAMOATE [Suspect]
     Active Substance: OLANZAPINE PAMOATE
     Indication: Schizoaffective disorder bipolar type
     Route: 042
     Dates: start: 20231101
  53. OLANZAPINE PAMOATE [Suspect]
     Active Substance: OLANZAPINE PAMOATE
     Indication: Schizoaffective disorder bipolar type
     Route: 042
     Dates: start: 20231129
  54. OLANZAPINE PAMOATE [Suspect]
     Active Substance: OLANZAPINE PAMOATE
     Indication: Schizoaffective disorder bipolar type
     Route: 042
     Dates: start: 20231228
  55. OLANZAPINE PAMOATE [Suspect]
     Active Substance: OLANZAPINE PAMOATE
     Indication: Schizoaffective disorder bipolar type
     Route: 042
     Dates: start: 20240126
  56. OLANZAPINE PAMOATE [Suspect]
     Active Substance: OLANZAPINE PAMOATE
     Indication: Schizoaffective disorder bipolar type
     Route: 042
     Dates: start: 20240221
  57. OLANZAPINE PAMOATE [Suspect]
     Active Substance: OLANZAPINE PAMOATE
     Indication: Schizoaffective disorder bipolar type
     Route: 042
     Dates: start: 20240320
  58. OLANZAPINE PAMOATE [Suspect]
     Active Substance: OLANZAPINE PAMOATE
     Indication: Schizoaffective disorder bipolar type
     Route: 042
     Dates: start: 20240417
  59. OLANZAPINE PAMOATE [Suspect]
     Active Substance: OLANZAPINE PAMOATE
     Indication: Schizoaffective disorder bipolar type
     Route: 042
     Dates: start: 20240515
  60. OLANZAPINE PAMOATE [Suspect]
     Active Substance: OLANZAPINE PAMOATE
     Indication: Schizoaffective disorder bipolar type
     Route: 042
     Dates: start: 20240612
  61. OLANZAPINE PAMOATE [Suspect]
     Active Substance: OLANZAPINE PAMOATE
     Indication: Schizoaffective disorder bipolar type
     Route: 042
     Dates: start: 20240710
  62. OLANZAPINE PAMOATE [Suspect]
     Active Substance: OLANZAPINE PAMOATE
     Indication: Schizoaffective disorder bipolar type
     Route: 042
     Dates: start: 20240807
  63. OLANZAPINE PAMOATE [Suspect]
     Active Substance: OLANZAPINE PAMOATE
     Indication: Schizoaffective disorder bipolar type
     Route: 042
     Dates: start: 20240904
  64. OLANZAPINE PAMOATE [Suspect]
     Active Substance: OLANZAPINE PAMOATE
     Indication: Schizoaffective disorder bipolar type
     Route: 042
     Dates: start: 20241003
  65. OLANZAPINE PAMOATE [Suspect]
     Active Substance: OLANZAPINE PAMOATE
     Indication: Schizoaffective disorder bipolar type
     Route: 042
     Dates: start: 20241106
  66. OLANZAPINE PAMOATE [Suspect]
     Active Substance: OLANZAPINE PAMOATE
     Indication: Schizoaffective disorder bipolar type
     Route: 042
     Dates: start: 20241204
  67. OLANZAPINE PAMOATE [Suspect]
     Active Substance: OLANZAPINE PAMOATE
     Indication: Schizoaffective disorder bipolar type
     Route: 042
     Dates: start: 20250103
  68. OLANZAPINE PAMOATE [Suspect]
     Active Substance: OLANZAPINE PAMOATE
     Indication: Schizoaffective disorder bipolar type
     Route: 042
     Dates: start: 20250131
  69. OLANZAPINE PAMOATE [Suspect]
     Active Substance: OLANZAPINE PAMOATE
     Indication: Schizoaffective disorder bipolar type
     Route: 042
     Dates: start: 20250226
  70. OLANZAPINE PAMOATE [Suspect]
     Active Substance: OLANZAPINE PAMOATE
     Indication: Schizoaffective disorder bipolar type
     Route: 042
     Dates: start: 20250326
  71. OLANZAPINE PAMOATE [Suspect]
     Active Substance: OLANZAPINE PAMOATE
     Indication: Schizoaffective disorder bipolar type
     Route: 042
     Dates: start: 20250425
  72. OLANZAPINE PAMOATE [Suspect]
     Active Substance: OLANZAPINE PAMOATE
     Indication: Schizoaffective disorder bipolar type
     Route: 042
     Dates: start: 20250523
  73. OLANZAPINE PAMOATE [Suspect]
     Active Substance: OLANZAPINE PAMOATE
     Indication: Schizoaffective disorder bipolar type
     Route: 042
     Dates: start: 20250620
  74. OLANZAPINE PAMOATE [Suspect]
     Active Substance: OLANZAPINE PAMOATE
     Indication: Schizoaffective disorder bipolar type
     Route: 042
     Dates: start: 20250718

REACTIONS (6)
  - Post-injection delirium sedation syndrome [Recovered/Resolved]
  - Blood chloride increased [Unknown]
  - White blood cell count increased [Unknown]
  - Neutrophil count increased [Unknown]
  - Lymphocyte count increased [Unknown]
  - Monocyte count increased [Unknown]

NARRATIVE: CASE EVENT DATE: 20250718
